FAERS Safety Report 25576264 (Version 2)
Quarter: 2025Q3

REPORT INFORMATION
  Report Type: Other
  Country: GB (occurrence: GB)
  Receive Date: 20250718
  Receipt Date: 20250804
  Transmission Date: 20251021
  Serious: Yes (Life-Threatening, Hospitalization, Other)
  Sender: STRIDES
  Company Number: None

PATIENT
  Age: 14 Day
  Sex: Female
  Weight: 1 kg

DRUGS (13)
  1. HYDROCORTISONE [Suspect]
     Active Substance: HYDROCORTISONE
     Indication: Bronchopulmonary dysplasia
     Route: 065
  2. HYDROCORTISONE [Suspect]
     Active Substance: HYDROCORTISONE
     Route: 065
  3. MEROPENEM [Concomitant]
     Active Substance: MEROPENEM
     Indication: Sepsis
     Route: 065
  4. FLUCLOXACILLIN [Concomitant]
     Active Substance: FLUCLOXACILLIN
     Indication: Necrotising colitis
     Route: 065
  5. Surfactants nos [Concomitant]
     Indication: Product used for unknown indication
     Route: 065
  6. Surfactants nos [Concomitant]
     Route: 065
  7. CAFFEINE CITRATE [Concomitant]
     Active Substance: CAFFEINE CITRATE
     Indication: Product used for unknown indication
     Route: 065
  8. CAFFEINE CITRATE [Concomitant]
     Active Substance: CAFFEINE CITRATE
     Route: 065
  9. DOPAMINE [Concomitant]
     Active Substance: DOPAMINE HYDROCHLORIDE
     Indication: Hypotension
     Route: 065
  10. ACETAMINOPHEN [Concomitant]
     Active Substance: ACETAMINOPHEN
     Indication: Patent ductus arteriosus
     Route: 065
  11. ACETAMINOPHEN [Concomitant]
     Active Substance: ACETAMINOPHEN
     Indication: Left-to-right cardiac shunt
  12. OXYGEN [Concomitant]
     Active Substance: OXYGEN
     Indication: Product used for unknown indication
     Route: 065
  13. OXYGEN [Concomitant]
     Active Substance: OXYGEN
     Route: 065

REACTIONS (8)
  - Hypertrophic cardiomyopathy [Recovered/Resolved]
  - Bradycardia [Recovered/Resolved]
  - Apnoea [Recovered/Resolved]
  - Left ventricular hypertrophy [Recovered/Resolved]
  - Acquired left ventricle outflow tract obstruction [Recovered/Resolved]
  - Pseudomonas infection [Unknown]
  - Neutrophilia [Unknown]
  - Off label use [Unknown]
